FAERS Safety Report 11531969 (Version 1)
Quarter: 2015Q3

REPORT INFORMATION
  Report Type: Spontaneous
  Country: DE (occurrence: DE)
  Receive Date: 20150921
  Receipt Date: 20150921
  Transmission Date: 20151125
  Serious: Yes (Hospitalization)
  Sender: FDA-Public Use
  Company Number: DE-PFIZER INC-A007681

PATIENT
  Age: 38 Year
  Sex: Male

DRUGS (1)
  1. DOXYCYCLINE. [Suspect]
     Active Substance: DOXYCYCLINE
     Indication: PYREXIA
     Dosage: UNK
     Route: 048
     Dates: start: 1984, end: 199701

REACTIONS (13)
  - Intentional overdose [Recovering/Resolving]
  - Leukopenia [Recovering/Resolving]
  - Platelet count increased [Recovering/Resolving]
  - Antibiotic level above therapeutic [Recovering/Resolving]
  - Anaemia [Recovering/Resolving]
  - Mental disorder [Recovering/Resolving]
  - Cholestasis [Recovering/Resolving]
  - Nephropathy toxic [Recovering/Resolving]
  - Supraventricular tachycardia [Recovering/Resolving]
  - Hepatic necrosis [Recovering/Resolving]
  - Skin hyperpigmentation [Recovering/Resolving]
  - Atrioventricular block second degree [Recovering/Resolving]
  - Hepatic steatosis [Recovering/Resolving]

NARRATIVE: CASE EVENT DATE: 199603
